FAERS Safety Report 9516450 (Version 6)
Quarter: 2014Q1

REPORT INFORMATION
  Report Type: Report from Study
  Country: US (occurrence: US)
  Receive Date: 20130911
  Receipt Date: 20140211
  Transmission Date: 20141002
  Serious: Yes (Hospitalization, Other)
  Sender: FDA-Public Use
  Company Number: US-ACTELION-A-US2013-85558

PATIENT
  Age: 80 Year
  Sex: Female

DRUGS (2)
  1. VENTAVIS [Suspect]
     Indication: PULMONARY ARTERIAL HYPERTENSION
     Dosage: UNK
     Route: 055
  2. VENTAVIS [Suspect]
     Dosage: 5 MCG, UNK
     Route: 055
     Dates: start: 20130902

REACTIONS (11)
  - Nephrolithiasis [Unknown]
  - Cholecystitis infective [Recovering/Resolving]
  - Cholecystectomy [Recovering/Resolving]
  - Contusion [Unknown]
  - Headache [Unknown]
  - Cough [Unknown]
  - Fatigue [Unknown]
  - Dyspnoea [Unknown]
  - Wound [Unknown]
  - Pain [Unknown]
  - Malaise [Unknown]
